FAERS Safety Report 19477231 (Version 1)
Quarter: 2021Q2

REPORT INFORMATION
  Report Type: Spontaneous
  Country: None (occurrence: US)
  Receive Date: 20210630
  Receipt Date: 20210630
  Transmission Date: 20210717
  Serious: Yes (Death, Other)
  Sender: FDA-Public Use
  Company Number: US-SA-2020SA024437

PATIENT
  Age: 11 Month
  Sex: Male

DRUGS (8)
  1. METHYLPREDNISOLONE. [Suspect]
     Active Substance: METHYLPREDNISOLONE
     Indication: PROPHYLAXIS AGAINST GRAFT VERSUS HOST DISEASE
     Dosage: UNK
  2. ISONIAZID. [Concomitant]
     Active Substance: ISONIAZID
     Indication: DISSEMINATED BACILLUS CALMETTE-GUERIN INFECTION
     Dosage: UNK
  3. RIFAMPIN. [Concomitant]
     Active Substance: RIFAMPIN
     Indication: DISSEMINATED BACILLUS CALMETTE-GUERIN INFECTION
     Dosage: UNK
  4. FLUDARABINE PHOSPHATE. [Suspect]
     Active Substance: FLUDARABINE PHOSPHATE
     Indication: IMMUNOSUPPRESSANT DRUG THERAPY
     Dosage: UNK
  5. MELPHALAN. [Suspect]
     Active Substance: MELPHALAN
     Indication: IMMUNOSUPPRESSANT DRUG THERAPY
     Dosage: UNK
  6. CICLOSPORIN [Suspect]
     Active Substance: CYCLOSPORINE
     Indication: PROPHYLAXIS AGAINST GRAFT VERSUS HOST DISEASE
     Dosage: UNK
  7. ALEMTUZUMAB [Suspect]
     Active Substance: ALEMTUZUMAB
     Indication: IMMUNOSUPPRESSANT DRUG THERAPY
     Dosage: UNK
  8. STREPTOMYCIN [Concomitant]
     Active Substance: STREPTOMYCIN SULFATE
     Indication: DISSEMINATED BACILLUS CALMETTE-GUERIN INFECTION
     Dosage: UNK

REACTIONS (10)
  - Pyrexia [Recovering/Resolving]
  - Immune reconstitution inflammatory syndrome [Unknown]
  - Immune thrombocytopenia [Fatal]
  - Off label use [Unknown]
  - Skin lesion [Recovering/Resolving]
  - Haemorrhage intracranial [Fatal]
  - Disseminated Bacillus Calmette-Guerin infection [Recovering/Resolving]
  - Enterococcal infection [Unknown]
  - Staphylococcal infection [Unknown]
  - Epstein-Barr viraemia [Unknown]
